FAERS Safety Report 16276516 (Version 1)
Quarter: 2019Q2

REPORT INFORMATION
  Report Type: Spontaneous
  Country: US (occurrence: US)
  Receive Date: 20190401
  Receipt Date: 20190401
  Transmission Date: 20190711
  Serious: No
  Sender: FDA-Public Use
  Company Number: None

PATIENT
  Age: 64 Year

DRUGS (1)
  1. IMATINIB 400MG TAB (X30) [Suspect]
     Active Substance: IMATINIB

REACTIONS (5)
  - Nausea [None]
  - Chest pain [None]
  - Dyspnoea [None]
  - Eructation [None]
  - Fatigue [None]

NARRATIVE: CASE EVENT DATE: 20190401
